FAERS Safety Report 5313529-9 (Version None)
Quarter: 2007Q2

REPORT INFORMATION
  Report Type: 
  Country: None (occurrence: None)
  Receive Date: 20070501
  Receipt Date: 20061114
  Transmission Date: 20071010
  Serious: No
  Sender: FDA-Public Use
  Company Number: 2006UW24349

PATIENT
  Age: 41 Year
  Sex: Female

DRUGS (3)
  1. ENTOCORT EC [Suspect]
     Indication: CROHN'S DISEASE
     Route: 048
     Dates: start: 20060701, end: 20061101
  2. ENTOCORT EC [Suspect]
     Route: 048
     Dates: start: 20061101
  3. IMURAN [Concomitant]
     Dates: end: 20061101

REACTIONS (3)
  - COUGH [None]
  - PHARYNGOLARYNGEAL PAIN [None]
  - RASH [None]
